FAERS Safety Report 23502073 (Version 2)
Quarter: 2025Q1

REPORT INFORMATION
  Report Type: Spontaneous
  Country: US (occurrence: US)
  Receive Date: 20240208
  Receipt Date: 20250211
  Transmission Date: 20250408
  Serious: No
  Sender: VERICEL
  Company Number: US-VERICEL-US-VCEL-23-000362

PATIENT
  Age: 34 Year
  Sex: Female

DRUGS (1)
  1. MACI [Suspect]
     Active Substance: AUTOLOGOUS CULTURED CHONDROCYTES\SUS SCROFA COLLAGEN
     Indication: Product used for unknown indication
     Route: 050
     Dates: start: 20231121, end: 20231121

REACTIONS (2)
  - Product leakage [Recovered/Resolved]
  - Intentional product use issue [Unknown]

NARRATIVE: CASE EVENT DATE: 20231121
